FAERS Safety Report 19306072 (Version 1)
Quarter: 2021Q2

REPORT INFORMATION
  Report Type: Spontaneous
  Country: AU (occurrence: AU)
  Receive Date: 20210525
  Receipt Date: 20210525
  Transmission Date: 20210717
  Serious: Yes (Other)
  Sender: FDA-Public Use
  Company Number: NVSC2021AU115873

PATIENT
  Sex: Male

DRUGS (4)
  1. POLARAMINE [Concomitant]
     Active Substance: DEXCHLORPHENIRAMINE MALEATE
     Indication: PRODUCT USED FOR UNKNOWN INDICATION
     Dosage: UNK
     Route: 065
  2. KETOTIFEN [Suspect]
     Active Substance: KETOTIFEN
     Indication: MAST CELL ACTIVATION SYNDROME
     Dosage: 1 MG, TDS
     Route: 065
  3. CETIRIZINE [Suspect]
     Active Substance: CETIRIZINE HYDROCHLORIDE
     Indication: MAST CELL ACTIVATION SYNDROME
     Dosage: UNK
     Route: 065
  4. SODIUM CROMOGLYCATE [Concomitant]
     Active Substance: CROMOLYN SODIUM
     Indication: PRODUCT USED FOR UNKNOWN INDICATION
     Dosage: 200 MG, TDS
     Route: 065

REACTIONS (20)
  - Mast cell activation syndrome [Unknown]
  - Feeling abnormal [Unknown]
  - Confusional state [Unknown]
  - Eye pruritus [Unknown]
  - Headache [Unknown]
  - Insomnia [Unknown]
  - Dizziness [Unknown]
  - Depression [Unknown]
  - Abdominal discomfort [Unknown]
  - Asthenia [Unknown]
  - Product use in unapproved indication [Unknown]
  - Anxiety [Unknown]
  - Weight decreased [Unknown]
  - Hypersensitivity [Unknown]
  - Hypotension [Unknown]
  - Constipation [Unknown]
  - Abdominal distension [Unknown]
  - Nasal pruritus [Unknown]
  - Thinking abnormal [Unknown]
  - Fatigue [Unknown]
